FAERS Safety Report 4674954-2 (Version None)
Quarter: 2005Q2

REPORT INFORMATION
  Report Type: 
  Country: None (occurrence: None)
  Receive Date: 20050525
  Receipt Date: 20050512
  Transmission Date: 20051028
  Serious: Yes (Other)
  Sender: FDA-Public Use
  Company Number: 2005073901

PATIENT
  Age: 42 Day
  Sex: Female

DRUGS (1)
  1. BENADRYL [Suspect]
     Indication: HYPERSENSITIVITY
     Dosage: UNSPECIFIED DOSE, ORAL
     Route: 048
     Dates: start: 20050511, end: 20050511

REACTIONS (2)
  - DIARRHOEA [None]
  - FAECES DISCOLOURED [None]
